FAERS Safety Report 6655934-4 (Version None)
Quarter: 2010Q1

REPORT INFORMATION
  Report Type: 
  Country: None (occurrence: None)
  Receive Date: 20100329
  Receipt Date: 20100319
  Transmission Date: 20100710
  Serious: Yes (Other)
  Sender: FDA-Public Use
  Company Number: PHEH2010US02211

PATIENT
  Sex: Female
  Weight: 188 kg

DRUGS (1)
  1. RECLAST [Suspect]
     Dosage: UNK
     Dates: start: 20090630

REACTIONS (12)
  - ARTHRALGIA [None]
  - ARTHRITIS [None]
  - ASTHENIA [None]
  - BEDRIDDEN [None]
  - GAIT DISTURBANCE [None]
  - INFLUENZA LIKE ILLNESS [None]
  - KNEE ARTHROPLASTY [None]
  - LOSS OF CONTROL OF LEGS [None]
  - LUMBAR VERTEBRAL FRACTURE [None]
  - MUSCULAR WEAKNESS [None]
  - NERVE INJURY [None]
  - WALKING AID USER [None]
